FAERS Safety Report 11466532 (Version 1)
Quarter: 2015Q3

REPORT INFORMATION
  Report Type: Spontaneous
  Country: US (occurrence: US)
  Receive Date: 20150907
  Receipt Date: 20150907
  Transmission Date: 20151125
  Serious: No
  Sender: FDA-Public Use
  Company Number: PHEH2015US016838

PATIENT
  Sex: Female

DRUGS (1)
  1. VIVELLE DOT [Suspect]
     Active Substance: ESTRADIOL
     Indication: PRODUCT USED FOR UNKNOWN INDICATION
     Dosage: 0.1 MG, UNK (EVERY 3 DAYS)
     Route: 065

REACTIONS (4)
  - Fibromyalgia [Unknown]
  - Migraine [Unknown]
  - Intervertebral disc degeneration [Unknown]
  - Inappropriate schedule of drug administration [Unknown]
